FAERS Safety Report 6114864-7 (Version None)
Quarter: 2009Q1

REPORT INFORMATION
  Report Type: 
  Country: None (occurrence: None)
  Receive Date: 20090311
  Receipt Date: 20080702
  Transmission Date: 20090719
  Serious: Yes (Other)
  Sender: FDA-Public Use
  Company Number: US200807000648

PATIENT
  Sex: Male

DRUGS (5)
  1. GEMZAR [Suspect]
     Indication: PANCREATIC CARCINOMA
  2. ABRAXANE [Concomitant]
  3. OXALIPLATIN [Concomitant]
  4. IRINOTECAN HCL [Concomitant]
  5. DOXIL [Concomitant]

REACTIONS (2)
  - MALIGNANT NEOPLASM PROGRESSION [None]
  - TUMOUR MARKER INCREASED [None]
